FAERS Safety Report 8950363 (Version 1)
Quarter: 2012Q4

REPORT INFORMATION
  Report Type: Report from Study
  Country: US (occurrence: US)
  Receive Date: 20121206
  Receipt Date: 20121206
  Transmission Date: 20130627
  Serious: Yes (Other)
  Sender: FDA-Public Use
  Company Number: US-ABBOTT-12P-163-0998972-00

PATIENT
  Age: 52 Year
  Sex: Male
  Weight: 103.74 kg

DRUGS (14)
  1. HUMIRA [Suspect]
     Indication: CROHN^S DISEASE
  2. PENTASA [Concomitant]
     Indication: PRODUCT USED FOR UNKNOWN INDICATION
     Dosage: 4 tablets in the morningg and 4 tablets in the evening
  3. PRILOSEC [Concomitant]
     Indication: GASTROOESOPHAGEAL REFLUX DISEASE
     Dosage: 1 tablet daily
  4. CALCIUM + VITAMIN D [Concomitant]
     Indication: SUPPLEMENTATION THERAPY
     Dosage: 1 tablet daily
  5. CALCIUM + VITAMIN D [Concomitant]
     Indication: OSTEOPENIA
  6. K-DUR [Concomitant]
     Indication: MUSCLE SPASMS
     Dosage: 1 tab in am; can take additional tab in pm if needed
  7. VITAMIN B12 [Concomitant]
     Indication: PRODUCT USED FOR UNKNOWN INDICATION
     Dosage: Montlhly
  8. CHOLESTYAMINE [Concomitant]
     Indication: COLON OPERATION
  9. UNKNOWN MEDICATION [Concomitant]
     Indication: MUSCLE RELAXANT THERAPY
     Route: 060
  10. PREDNISONE [Concomitant]
  11. PREDNISONE [Concomitant]
     Dosage: As low as 8mg daily, currently at 10mg daily
  12. LIBRAX [Concomitant]
     Indication: PRODUCT USED FOR UNKNOWN INDICATION
     Dosage: Off and on for years
  13. STEROIDS [Concomitant]
     Indication: PRODUCT USED FOR UNKNOWN INDICATION
     Dosage: Long term, tapering/varying dose
  14. LEVSIN [Concomitant]
     Indication: PRODUCT USED FOR UNKNOWN INDICATION

REACTIONS (7)
  - Skin cancer [Recovering/Resolving]
  - Intestinal anastomosis complication [Unknown]
  - Diarrhoea [Unknown]
  - Depression [Unknown]
  - Stress [Unknown]
  - Injection site pain [Unknown]
  - Needle issue [Unknown]
